FAERS Safety Report 11272591 (Version 2)
Quarter: 2015Q3

REPORT INFORMATION
  Report Type: Spontaneous
  Country: US (occurrence: US)
  Receive Date: 20150715
  Receipt Date: 20150828
  Transmission Date: 20151125
  Serious: Yes (Hospitalization, Disabling, Other)
  Sender: FDA-Public Use
  Company Number: US-AMGEN-USASP2015069470

PATIENT
  Age: 64 Year
  Sex: Female

DRUGS (29)
  1. PENICILLIN                         /00000901/ [Suspect]
     Active Substance: PENICILLIN G
     Indication: PRODUCT USED FOR UNKNOWN INDICATION
     Dosage: UNK
     Route: 065
  2. FOSAMAX [Suspect]
     Active Substance: ALENDRONATE SODIUM
     Indication: PRODUCT USED FOR UNKNOWN INDICATION
     Dosage: UNK
     Route: 065
  3. PLAQUENIL [Concomitant]
     Active Substance: HYDROXYCHLOROQUINE SULFATE
     Dosage: 200 MG, BID
     Dates: start: 20120120, end: 20121015
  4. BUDESONIDE. [Concomitant]
     Active Substance: BUDESONIDE
     Dosage: 3 MG, QD
     Dates: start: 20140501
  5. ENBREL [Suspect]
     Active Substance: ETANERCEPT
     Indication: RHEUMATOID ARTHRITIS
     Dosage: UNK UNK, QWK
     Route: 065
  6. METHOTREXATE [Suspect]
     Active Substance: METHOTREXATE
     Indication: PRODUCT USED FOR UNKNOWN INDICATION
     Dosage: UNK
     Route: 065
  7. ARAVA [Suspect]
     Active Substance: LEFLUNOMIDE
     Indication: PRODUCT USED FOR UNKNOWN INDICATION
     Dosage: UNK
     Route: 065
     Dates: end: 201503
  8. PROMETHAZINE [Concomitant]
     Active Substance: PROMETHAZINE\PROMETHAZINE HYDROCHLORIDE
     Dosage: 25 MG, QD, PRN
     Dates: start: 20150401
  9. HUMIRA [Suspect]
     Active Substance: ADALIMUMAB
     Indication: PRODUCT USED FOR UNKNOWN INDICATION
     Dosage: UNK
     Route: 065
  10. PREDNISOLONE. [Concomitant]
     Active Substance: PREDNISOLONE
     Dosage: UNK
     Dates: start: 20150401
  11. KLONOPIN [Concomitant]
     Active Substance: CLONAZEPAM
     Dosage: 1 MG, 1 TABLET IN AM AND 1 TABLET IN QHS
     Route: 048
     Dates: start: 20100607
  12. XELJANZ [Concomitant]
     Active Substance: TOFACITINIB CITRATE
     Dosage: 10 MG, BID
     Route: 048
     Dates: start: 20140729
  13. MIRTAZAPINE. [Concomitant]
     Active Substance: MIRTAZAPINE
     Dosage: 15 MG, QHS
     Dates: start: 20150401
  14. ACTEMRA [Suspect]
     Active Substance: TOCILIZUMAB
     Indication: PRODUCT USED FOR UNKNOWN INDICATION
     Dosage: UNK
     Route: 065
  15. MOBIC [Suspect]
     Active Substance: MELOXICAM
     Indication: PRODUCT USED FOR UNKNOWN INDICATION
     Dosage: UNK
     Route: 065
  16. ORENCIA [Suspect]
     Active Substance: ABATACEPT
     Indication: PRODUCT USED FOR UNKNOWN INDICATION
     Dosage: UNK
     Route: 065
  17. LIDODERM [Concomitant]
     Active Substance: LIDOCAINE
     Dosage: PATCH 12 HOURS ON/ 12 HOURS OFF PRN
     Dates: start: 20131101
  18. VITAMIN D                          /00107901/ [Concomitant]
     Active Substance: ERGOCALCIFEROL
     Dosage: 1000 IU, QD
     Dates: start: 20100607
  19. PREMARIN [Concomitant]
     Active Substance: ESTROGENS, CONJUGATED
     Dosage: 1.25 MG, QD
     Dates: start: 20100607
  20. CENTRUM                            /07499601/ [Concomitant]
     Dosage: 1 TABLET, QD
     Dates: start: 20100607
  21. VOLTAREN [Concomitant]
     Active Substance: DICLOFENAC SODIUM
     Dosage: 1 %, UNK
     Dates: start: 20130805
  22. CALCIUM [Concomitant]
     Active Substance: CALCIUM
     Dosage: UNK UNK, QD
     Dates: start: 20140501
  23. TOPIRAMATE. [Concomitant]
     Active Substance: TOPIRAMATE
     Dosage: 100 MG, QHS
  24. FISH OIL [Concomitant]
     Active Substance: FISH OIL
     Dosage: 1 TABLET, BID
     Dates: start: 20130501
  25. METAMUCIL [Concomitant]
     Active Substance: PLANTAGO SEED
     Dosage: 1 TPSN BILD PRN
     Dates: start: 20130501
  26. NEURONTIN [Concomitant]
     Active Substance: GABAPENTIN
     Dosage: 800 MG, TID TO QID
     Route: 048
     Dates: start: 20100607
  27. IRON [Concomitant]
     Active Substance: IRON
     Dosage: 1 TABLET, QD
     Dates: start: 20130401
  28. PRILOCAINE [Concomitant]
     Active Substance: PRILOCAINE
     Dosage: 2.5 %, UNK
     Dates: start: 20131115
  29. SINGULAIR [Concomitant]
     Active Substance: MONTELUKAST SODIUM
     Dosage: 10 MG, QD
     Dates: start: 20150401

REACTIONS (50)
  - Hypoaesthesia [Unknown]
  - Weight increased [Unknown]
  - Inflammation [Unknown]
  - Dyspnoea [Unknown]
  - Vomiting [Unknown]
  - Sinusitis [Unknown]
  - Post procedural infection [Recovered/Resolved]
  - Red blood cell sedimentation rate increased [Unknown]
  - Dry eye [Unknown]
  - Dry mouth [Unknown]
  - Osteolysis [Unknown]
  - Nasal congestion [Unknown]
  - Lung disorder [Unknown]
  - Ulcer [Unknown]
  - Knee arthroplasty [Unknown]
  - Hospitalisation [Unknown]
  - Interstitial lung disease [Recovered/Resolved]
  - Device related infection [Unknown]
  - Bone deformity [Unknown]
  - Arthralgia [Unknown]
  - Complex regional pain syndrome [Unknown]
  - Neuropathy peripheral [Not Recovered/Not Resolved]
  - Mobility decreased [Unknown]
  - Sleep disorder [Unknown]
  - Fatigue [Unknown]
  - Dizziness [Unknown]
  - C-reactive protein increased [Unknown]
  - Cough [Unknown]
  - Asthma [Unknown]
  - Chest pain [Unknown]
  - Pneumothorax [Unknown]
  - Dyspepsia [Unknown]
  - Surgery [Unknown]
  - Musculoskeletal pain [Unknown]
  - Nausea [Unknown]
  - Stomatitis [Unknown]
  - Joint swelling [Unknown]
  - Spinal osteoarthritis [Unknown]
  - Myalgia [Unknown]
  - Drug ineffective [Unknown]
  - Gastritis [Unknown]
  - Disability [Unknown]
  - Alveolar proteinosis [Unknown]
  - Arthritis bacterial [Unknown]
  - Pneumonia [Unknown]
  - Tinnitus [Unknown]
  - Back pain [Unknown]
  - Pain in extremity [Unknown]
  - Arthropathy [Unknown]
  - Musculoskeletal stiffness [Unknown]

NARRATIVE: CASE EVENT DATE: 200910
